FAERS Safety Report 15891836 (Version 1)
Quarter: 2019Q1

REPORT INFORMATION
  Report Type: Spontaneous
  Country: CN (occurrence: CN)
  Receive Date: 20190130
  Receipt Date: 20190130
  Transmission Date: 20190417
  Serious: Yes (Hospitalization)
  Sender: FDA-Public Use
  Company Number: CN-MYLANLABS-2019M1008017

PATIENT
  Age: 83 Year
  Sex: Male

DRUGS (4)
  1. LINEZOLID. [Suspect]
     Active Substance: LINEZOLID
     Indication: INFECTIOUS PLEURAL EFFUSION
  2. LINEZOLID. [Suspect]
     Active Substance: LINEZOLID
     Indication: INFECTIOUS PLEURAL EFFUSION
  3. LINEZOLID. [Suspect]
     Active Substance: LINEZOLID
     Indication: STAPHYLOCOCCAL INFECTION
     Dosage: CHANGED TO ORAL
     Route: 048
  4. LINEZOLID. [Suspect]
     Active Substance: LINEZOLID
     Indication: STAPHYLOCOCCAL INFECTION
     Dosage: 600 MILLIGRAM
     Route: 042

REACTIONS (1)
  - Aplasia pure red cell [Recovered/Resolved]
